FAERS Safety Report 7880259-9 (Version None)
Quarter: 2011Q4

REPORT INFORMATION
  Report Type: 
  Country: None (occurrence: None)
  Receive Date: 20111101
  Receipt Date: 20100510
  Transmission Date: 20120403
  Serious: No
  Sender: FDA-Public Use
  Company Number: US-BAYER-201022171NA

PATIENT
  Age: 57 Year
  Sex: Male

DRUGS (2)
  1. AVELOX [Suspect]
     Indication: EAR INFECTION
     Dosage: 1 DF, QD
     Dates: start: 20100430
  2. IBUPROFEN [Suspect]

REACTIONS (7)
  - ASTHENIA [None]
  - FATIGUE [None]
  - CONTUSION [None]
  - HEADACHE [None]
  - NIGHT SWEATS [None]
  - RASH [None]
  - PYREXIA [None]
